FAERS Safety Report 6343194-3 (Version None)
Quarter: 2009Q3

REPORT INFORMATION
  Report Type: 
  Country: None (occurrence: None)
  Receive Date: 20090908
  Receipt Date: 20090827
  Transmission Date: 20100115
  Serious: Yes (Other)
  Sender: FDA-Public Use
  Company Number: US-NOVOPROD-291063

PATIENT
  Age: 78 Year
  Sex: Female
  Weight: 73.016 kg

DRUGS (1)
  1. LEVEMIR [Suspect]
     Indication: INSULIN-REQUIRING TYPE 2 DIABETES MELLITUS
     Dosage: 25 IU, QD
     Route: 058
     Dates: start: 20080101

REACTIONS (1)
  - DIABETIC FOOT [None]
